FAERS Safety Report 6220915-1 (Version None)
Quarter: 2009Q2

REPORT INFORMATION
  Report Type: 
  Country: None (occurrence: None)
  Receive Date: 20090604
  Receipt Date: 20090518
  Transmission Date: 20091009
  Serious: Yes (Hospitalization)
  Sender: FDA-Public Use
  Company Number: B0558073A

PATIENT
  Age: 54 Year
  Sex: Female

DRUGS (6)
  1. IMITREX [Suspect]
     Indication: MIGRAINE WITHOUT AURA
     Dosage: 6 MG / SUBCUTANEOUS
     Route: 058
  2. INDOMETHACIN [Concomitant]
  3. NORTRIPTYLINE HCL [Concomitant]
  4. TRIMIPRAMINE MALEATE [Concomitant]
  5. ERGOTAMINE [Concomitant]
  6. SUMATRIPTAN SUCCINATE [Concomitant]

REACTIONS (4)
  - ACUTE MYOCARDIAL INFARCTION [None]
  - BLOOD CHOLESTEROL INCREASED [None]
  - BLOOD TRIGLYCERIDES INCREASED [None]
  - THROAT TIGHTNESS [None]
